FAERS Safety Report 20942659 (Version 1)
Quarter: 2022Q2

REPORT INFORMATION
  Report Type: Spontaneous
  Country: JP (occurrence: JP)
  Receive Date: 20220610
  Receipt Date: 20220610
  Transmission Date: 20220721
  Serious: Yes (Other)
  Sender: FDA-Public Use
  Company Number: JP-STRIDES ARCOLAB LIMITED-2022SP006817

PATIENT
  Sex: Male

DRUGS (28)
  1. ETOPOSIDE [Suspect]
     Active Substance: ETOPOSIDE
     Indication: Medulloblastoma
     Dosage: UNK, TOTAL DOSE OF 2 GRAM PER SQUARE METRE
     Route: 065
  2. METHOTREXATE [Suspect]
     Active Substance: METHOTREXATE
     Indication: Medulloblastoma
     Dosage: UNK, TOTAL DOSE OF 216 GRAM PER SQUARE METRE
     Route: 065
  3. CYCLOPHOSPHAMIDE [Suspect]
     Active Substance: CYCLOPHOSPHAMIDE
     Indication: Medulloblastoma
     Dosage: UNK, TOTAL DOSE 12 GRAM PER SQUARE METRE
     Route: 065
  4. CISPLATIN [Suspect]
     Active Substance: CISPLATIN
     Indication: Medulloblastoma
     Dosage: UNK, TOTAL DOSE RECEIVED PRIOR TO OSTEOSARCOMA: 360 MG/M2
     Route: 065
  5. CISPLATIN [Suspect]
     Active Substance: CISPLATIN
     Indication: Osteosarcoma
     Dosage: UNK, TOTAL DOSE RECEIVED PRIOR TO MDS: 500 MG/M2
     Route: 065
  6. VINCRISTINE [Suspect]
     Active Substance: VINCRISTINE
     Indication: Medulloblastoma
     Dosage: UNK, TOTAL DOSE 15 MILLIGRAM/SQ. METER
     Route: 065
  7. THIOTEPA [Suspect]
     Active Substance: THIOTEPA
     Indication: Medulloblastoma
     Dosage: UNK, TOTAL DOSE OF 26 MILLIGRAM/KILOGRAM
     Route: 065
  8. MELPHALAN [Suspect]
     Active Substance: MELPHALAN
     Indication: Medulloblastoma
     Dosage: UNK, TOTAL DOSE OF 6 MILLIGRAM/KILOGRAM (RECEIVED PRIOR TO OSTEOSARCOMA
     Route: 065
  9. MELPHALAN [Suspect]
     Active Substance: MELPHALAN
     Indication: Osteosarcoma
     Dosage: UNK, TOTAL DOSE OF 140 MILLIGRAM/SQ. METER (RECEIVED PRIOR TO BASAL CELL CARCINOMA AND BENIGN ODONTO
     Route: 065
  10. MELPHALAN [Suspect]
     Active Substance: MELPHALAN
     Indication: Myelodysplastic syndrome
  11. DOXORUBICIN [Suspect]
     Active Substance: DOXORUBICIN
     Indication: Osteosarcoma
     Dosage: UNK , TOTAL DOSE OF 180 MILLIGRAM/SQ. METER
     Route: 065
  12. DOXORUBICIN [Suspect]
     Active Substance: DOXORUBICIN
     Indication: Medulloblastoma
  13. IFOSFAMIDE [Suspect]
     Active Substance: IFOSFAMIDE
     Indication: Osteosarcoma
     Dosage: UNK, TOTAL DOSE OF 36 GRAM PER SQUARE METRE
     Route: 065
  14. IFOSFAMIDE [Suspect]
     Active Substance: IFOSFAMIDE
     Indication: Medulloblastoma
  15. PIRARUBICIN [Suspect]
     Active Substance: PIRARUBICIN
     Indication: Osteosarcoma
     Dosage: 585 MILLIGRAM/SQ. METER
     Route: 065
  16. PIRARUBICIN [Suspect]
     Active Substance: PIRARUBICIN
     Indication: Medulloblastoma
  17. BUSULFAN [Suspect]
     Active Substance: BUSULFAN
     Indication: Medulloblastoma
     Dosage: UNK, TOTAL DOSE OF 6.4 MILLIGRAM/KILOGRAM
     Route: 065
  18. BUSULFAN [Suspect]
     Active Substance: BUSULFAN
     Indication: Osteosarcoma
  19. BUSULFAN [Suspect]
     Active Substance: BUSULFAN
     Indication: Myelodysplastic syndrome
  20. FLUDARABINE [Suspect]
     Active Substance: FLUDARABINE PHOSPHATE
     Indication: Medulloblastoma
     Dosage: 120 MILLIGRAM/SQ. METER
     Route: 065
  21. FLUDARABINE [Suspect]
     Active Substance: FLUDARABINE PHOSPHATE
     Indication: Osteosarcoma
  22. FLUDARABINE [Suspect]
     Active Substance: FLUDARABINE PHOSPHATE
     Indication: Myelodysplastic syndrome
  23. CYTARABINE [Suspect]
     Active Substance: CYTARABINE
     Indication: Medulloblastoma
     Dosage: INITIAL DOSAGE NOT STATED
     Route: 065
  24. CYTARABINE [Suspect]
     Active Substance: CYTARABINE
     Indication: Osteosarcoma
     Dosage: UNK, TOTAL DOSE OF 50 MILLIGRAM/SQ. METER
     Route: 065
  25. CYTARABINE [Suspect]
     Active Substance: CYTARABINE
     Indication: Myelodysplastic syndrome
  26. AZACITIDINE [Suspect]
     Active Substance: AZACITIDINE
     Indication: Medulloblastoma
     Dosage: INITIAL DOSAGE NOT STATED
     Route: 065
  27. AZACITIDINE [Suspect]
     Active Substance: AZACITIDINE
     Indication: Osteosarcoma
     Dosage: 182 MILLIGRAM/SQ. METER
     Route: 065
  28. AZACITIDINE [Suspect]
     Active Substance: AZACITIDINE
     Indication: Myelodysplastic syndrome

REACTIONS (6)
  - Odontogenic cyst [Recovered/Resolved]
  - Myelodysplastic syndrome [Recovered/Resolved]
  - Osteosarcoma [Recovered/Resolved]
  - Second primary malignancy [Recovered/Resolved]
  - Basal cell carcinoma [Recovered/Resolved]
  - Off label use [Unknown]
